FAERS Safety Report 5499114-7 (Version None)
Quarter: 2007Q4

REPORT INFORMATION
  Report Type: 
  Country: None (occurrence: None)
  Receive Date: 20071026
  Receipt Date: 20070530
  Transmission Date: 20080405
  Serious: No
  Sender: FDA-Public Use
  Company Number: A0653913A

PATIENT
  Sex: Female

DRUGS (1)
  1. ADVAIR DISKUS 100/50 [Suspect]
     Indication: ASTHMA
     Route: 055
     Dates: start: 20070316, end: 20070401

REACTIONS (8)
  - ADVERSE EVENT [None]
  - ASTHENIA [None]
  - DIZZINESS [None]
  - FATIGUE [None]
  - LETHARGY [None]
  - MENTAL IMPAIRMENT [None]
  - PERSONALITY CHANGE [None]
  - SENSORY DISTURBANCE [None]
